FAERS Safety Report 20086759 (Version 1)
Quarter: 2021Q4

REPORT INFORMATION
  Report Type: Spontaneous
  Country: US (occurrence: US)
  Receive Date: 20211118
  Receipt Date: 20211118
  Transmission Date: 20220303
  Serious: Yes (Hospitalization, Other)
  Sender: FDA-Public Use
  Company Number: US-ENDO PHARMACEUTICALS INC-2021-013068

PATIENT
  Age: 5 Month
  Sex: Female

DRUGS (1)
  1. TESTIM [Suspect]
     Active Substance: TESTOSTERONE
     Indication: Product used for unknown indication
     Dosage: UNK UNKNOWN, UNKNOWN
     Route: 065

REACTIONS (4)
  - Intentional product misuse to child [Recovered/Resolved]
  - Exposure via skin contact [Recovered/Resolved]
  - Victim of sexual abuse [Recovered/Resolved]
  - Virilism [Not Recovered/Not Resolved]
